FAERS Safety Report 8732682 (Version 3)
Quarter: 2012Q4

REPORT INFORMATION
  Report Type: 
  Country: AR (occurrence: AR)
  Receive Date: 20120820
  Receipt Date: 20120920
  Transmission Date: 20130627
  Serious: Yes (Hospitalization, Other)
  Sender: FDA-Public Use
  Company Number: AR-ROCHE-1102832

PATIENT
  Age: 84 Year
  Sex: Male

DRUGS (4)
  1. LUCENTIS [Suspect]
     Indication: MACULOPATHY
     Route: 050
     Dates: start: 20120808
  2. LOSARTAN [Concomitant]
     Indication: HYPERTENSION
  3. SERETIDE [Concomitant]
     Indication: TOBACCO USER
  4. TRANQUINAL [Concomitant]

REACTIONS (4)
  - Myocardial infarction [Unknown]
  - Stress [Recovering/Resolving]
  - Nervousness [Recovering/Resolving]
  - Asthenia [Recovering/Resolving]
